FAERS Safety Report 25867752 (Version 1)
Quarter: 2025Q4

REPORT INFORMATION
  Report Type: Report from Study
  Country: US (occurrence: US)
  Receive Date: 20251001
  Receipt Date: 20251001
  Transmission Date: 20260118
  Serious: Yes (Hospitalization, Other)
  Sender: GILEAD
  Company Number: US-GILEAD-2025-0729859

PATIENT
  Sex: Female

DRUGS (17)
  1. AZTREONAM LYSINE [Suspect]
     Active Substance: AZTREONAM LYSINE
     Indication: Cystic fibrosis lung
     Dosage: 75 MG, TID
     Route: 055
  2. LEVALBUTEROL [Concomitant]
     Active Substance: LEVALBUTEROL
  3. TRIKAFTA [Concomitant]
     Active Substance: ELEXACAFTOR\IVACAFTOR\TEZACAFTOR
  4. PULMOZYME [Concomitant]
     Active Substance: DORNASE ALFA
  5. EMGALITY [Concomitant]
     Active Substance: GALCANEZUMAB-GNLM
  6. RIZATRIPTAN [Concomitant]
     Active Substance: RIZATRIPTAN
  7. SUMATRIPTAN SUCCINATE [Concomitant]
     Active Substance: SUMATRIPTAN SUCCINATE
  8. PREGABALIN [Concomitant]
     Active Substance: PREGABALIN
  9. OXYCODONE [Concomitant]
     Active Substance: OXYCODONE
  10. CLONAZEPAM [Concomitant]
     Active Substance: CLONAZEPAM
  11. TOBRAMYCIN [Concomitant]
     Active Substance: TOBRAMYCIN
  12. CYCLOBENZAPRINE [Concomitant]
     Active Substance: CYCLOBENZAPRINE
  13. ALBUTEROL SULFATE [Concomitant]
     Active Substance: ALBUTEROL SULFATE
  14. CREON [Concomitant]
     Active Substance: PANCRELIPASE AMYLASE\PANCRELIPASE LIPASE\PANCRELIPASE PROTEASE
  15. VITAMIN D3 [Concomitant]
     Active Substance: CHOLECALCIFEROL
  16. URSODIOL [Concomitant]
     Active Substance: URSODIOL
  17. PROAIR RESPICLICK [Concomitant]
     Active Substance: ALBUTEROL SULFATE
     Dosage: UNK

REACTIONS (8)
  - COVID-19 [Unknown]
  - Autoimmune disorder [Unknown]
  - Gastrointestinal tube insertion [Not Recovered/Not Resolved]
  - Wheelchair user [Not Recovered/Not Resolved]
  - Paraesthesia oral [Recovered/Resolved]
  - Mouth ulceration [Recovered/Resolved]
  - Tachycardia [Unknown]
  - Dyspnoea [Unknown]
